FAERS Safety Report 12415451 (Version 6)
Quarter: 2017Q2

REPORT INFORMATION
  Report Type: Spontaneous
  Country: US (occurrence: US)
  Receive Date: 20160530
  Receipt Date: 20170410
  Transmission Date: 20170830
  Serious: Yes (Death, Hospitalization, Other)
  Sender: FDA-Public Use
  Company Number: US-BAXTER-2016BAX025982

PATIENT
  Age: 71 Year
  Sex: Female

DRUGS (2)
  1. DIANEAL LOW CALCIUM PERITONEAL DIALYSIS SOLUTION WITH DEXTROSE [Suspect]
     Active Substance: CALCIUM CHLORIDE\DEXTROSE\MAGNESIUM CHLORIDE\SODIUM CHLORIDE\SODIUM LACTATE
     Indication: PERITONEAL DIALYSIS
     Route: 033
  2. DIANEAL LOW CALCIUM PERITONEAL DIALYSIS SOLUTION WITH DEXTROSE [Suspect]
     Active Substance: CALCIUM CHLORIDE\DEXTROSE\MAGNESIUM CHLORIDE\SODIUM CHLORIDE\SODIUM LACTATE
     Indication: PERITONEAL DIALYSIS
     Route: 033

REACTIONS (21)
  - Transient ischaemic attack [Not Recovered/Not Resolved]
  - Gastrointestinal haemorrhage [Unknown]
  - Hypotension [Unknown]
  - Weight increased [Unknown]
  - Cerebral disorder [Not Recovered/Not Resolved]
  - Catheter site infection [Unknown]
  - Cerebrovascular accident [Unknown]
  - Asthenia [Unknown]
  - Death [Fatal]
  - Blood albumin decreased [Unknown]
  - Diarrhoea [Unknown]
  - Mental status changes [Unknown]
  - Seizure [Unknown]
  - Cardiac failure congestive [Unknown]
  - Diabetes mellitus [Unknown]
  - Drug dose omission [Unknown]
  - Appetite disorder [Unknown]
  - Fluid overload [Unknown]
  - Myocardial infarction [Not Recovered/Not Resolved]
  - Loss of consciousness [Unknown]
  - Insomnia [Unknown]

NARRATIVE: CASE EVENT DATE: 20160504
